FAERS Safety Report 6074326-2 (Version None)
Quarter: 2009Q1

REPORT INFORMATION
  Report Type: 
  Country: None (occurrence: None)
  Receive Date: 20090211
  Receipt Date: 20090203
  Transmission Date: 20090719
  Serious: No
  Sender: FDA-Public Use
  Company Number: US-B.I. PHARMACEUTICALS,INC./RIDGEFIELD-2009-BP-01404BP

PATIENT
  Sex: Male

DRUGS (4)
  1. MIRAPEX [Suspect]
     Indication: RESTLESS LEGS SYNDROME
  2. TYLENOL [Concomitant]
     Indication: RESTLESS LEGS SYNDROME
  3. ASPIRIN [Concomitant]
     Indication: RESTLESS LEGS SYNDROME
  4. VITAMINS [Concomitant]
     Indication: RESTLESS LEGS SYNDROME

REACTIONS (8)
  - ACTIVITIES OF DAILY LIVING IMPAIRED [None]
  - FATIGUE [None]
  - LIMB DISCOMFORT [None]
  - MOOD ALTERED [None]
  - MOVEMENT DISORDER [None]
  - RESTLESS LEGS SYNDROME [None]
  - SLEEP DISORDER [None]
  - SOMNOLENCE [None]
